FAERS Safety Report 24360916 (Version 1)
Quarter: 2024Q3

REPORT INFORMATION
  Report Type: Spontaneous
  Country: JP (occurrence: JP)
  Receive Date: 20240925
  Receipt Date: 20240925
  Transmission Date: 20241016
  Serious: Yes (Death)
  Sender: AMGEN
  Company Number: JP-AMGEN-JPNSP2024187893

PATIENT

DRUGS (1)
  1. LUMAKRAS [Suspect]
     Active Substance: SOTORASIB
     Indication: Non-small cell lung cancer
     Dosage: 960 MILLIGRAM, ADMINISTRATION VIA GASTROSTOMY
     Dates: start: 20240828

REACTIONS (1)
  - Non-small cell lung cancer [Fatal]
